FAERS Safety Report 9012859 (Version 3)
Quarter: 2013Q4

REPORT INFORMATION
  Report Type: Spontaneous
  Country: US (occurrence: US)
  Receive Date: 20130114
  Receipt Date: 20131218
  Transmission Date: 20140711
  Serious: Yes (Hospitalization, Disabling, Other)
  Sender: FDA-Public Use
  Company Number: US-009507513-1301USA005206

PATIENT
  Sex: Female
  Weight: 137.41 kg

DRUGS (1)
  1. NUVARING [Suspect]
     Indication: CONTRACEPTION
     Dosage: UNK
     Route: 067
     Dates: start: 201107, end: 20111128

REACTIONS (12)
  - Protein C deficiency [Unknown]
  - Pulmonary embolism [Unknown]
  - Deep vein thrombosis [Unknown]
  - Vena cava filter insertion [Unknown]
  - Tendonitis [Unknown]
  - Diverticulitis [Unknown]
  - Iron deficiency [Unknown]
  - Arthritis [Unknown]
  - Protein S deficiency [Unknown]
  - Phlebitis [Unknown]
  - Ligament sprain [Unknown]
  - Exostosis [Unknown]
